FAERS Safety Report 20394427 (Version 1)
Quarter: 2022Q1

REPORT INFORMATION
  Report Type: Spontaneous
  Country: US (occurrence: US)
  Receive Date: 20220129
  Receipt Date: 20220129
  Transmission Date: 20220423
  Serious: Yes (Other)
  Sender: FDA-Public Use
  Company Number: US-009507513-2201USA007913

PATIENT
  Sex: Male
  Weight: 71.7 kg

DRUGS (1)
  1. KEYTRUDA [Suspect]
     Active Substance: PEMBROLIZUMAB
     Indication: Transitional cell cancer of renal pelvis and ureter metastatic
     Dosage: 170.6 MILLIGRAM, EVERY 3 WEEKS
     Route: 042
     Dates: start: 20210520, end: 20211014

REACTIONS (2)
  - Malignant neoplasm progression [Unknown]
  - Incorrect dose administered [Unknown]

NARRATIVE: CASE EVENT DATE: 20210101
